FAERS Safety Report 21266850 (Version 1)
Quarter: 2022Q3

REPORT INFORMATION
  Report Type: Spontaneous
  Country: US (occurrence: US)
  Receive Date: 20220829
  Receipt Date: 20220829
  Transmission Date: 20221027
  Serious: No
  Sender: FDA-Public Use
  Company Number: US-INCYTE CORPORATION-2022IN008045

PATIENT

DRUGS (1)
  1. JAKAFI [Suspect]
     Active Substance: RUXOLITINIB
     Dosage: 10 MILLIGRAM, BID
     Route: 048
     Dates: start: 202207

REACTIONS (6)
  - Peripheral swelling [Unknown]
  - Weight increased [Unknown]
  - Gingival bleeding [Unknown]
  - Cardiovascular disorder [Unknown]
  - Condition aggravated [Unknown]
  - Respiration abnormal [Unknown]

NARRATIVE: CASE EVENT DATE: 20220812
